FAERS Safety Report 19196648 (Version 1)
Quarter: 2021Q2

REPORT INFORMATION
  Report Type: Spontaneous
  Country: US (occurrence: US)
  Receive Date: 20210429
  Receipt Date: 20210429
  Transmission Date: 20210717
  Serious: No
  Sender: FDA-Public Use
  Company Number: US-PERRIGO-21US002262

PATIENT
  Age: 68 Year
  Sex: Male
  Weight: 86.17 kg

DRUGS (36)
  1. MECLIZINE [Concomitant]
     Active Substance: MECLIZINE HYDROCHLORIDE
     Indication: DIZZINESS
     Dosage: UNK
     Route: 065
     Dates: start: 202012
  2. PRAVASTATIN. [Concomitant]
     Active Substance: PRAVASTATIN
     Indication: BLOOD CHOLESTEROL INCREASED
     Dosage: 40 MG, QD, AT NIGHT
     Route: 065
     Dates: start: 202005
  3. PAROXETINE. [Concomitant]
     Active Substance: PAROXETINE
     Indication: DEPRESSION
     Dosage: 30 MG, QD
     Route: 065
     Dates: start: 201810
  4. FLUTICASONE. [Concomitant]
     Active Substance: FLUTICASONE
     Indication: PERENNIAL ALLERGY
     Dosage: 1 SPRAY EACH NOSTRIL, BID
     Route: 045
     Dates: start: 201511
  5. TRAMADOL. [Concomitant]
     Active Substance: TRAMADOL
     Indication: PAIN
     Dosage: UNK
     Route: 065
     Dates: start: 202011, end: 202011
  6. ANDROGEL [Concomitant]
     Active Substance: TESTOSTERONE
     Indication: BLOOD TESTOSTERONE DECREASED
     Dosage: 1.62% 2 PACKETS, QD
     Route: 061
     Dates: start: 202007
  7. B COMPLEX                          /00322001/ [Concomitant]
     Active Substance: CALCIUM PANTOTHENATE\CYANOCOBALAMIN\NIACINAMIDE\PYRIDOXINE HYDROCHLORIDE\RIBOFLAVIN\THIAMINE HYDROCHLORIDE
     Indication: SUPPLEMENTATION THERAPY
     Dosage: UNK
     Route: 065
  8. PROBIOTIC                          /06395501/ [Concomitant]
     Active Substance: BIFIDOBACTERIUM ANIMALIS LACTIS
     Indication: PROPHYLAXIS
     Dosage: UNK, QD
     Route: 065
     Dates: start: 201303
  9. ZYRTEC [Concomitant]
     Active Substance: CETIRIZINE HYDROCHLORIDE
     Indication: PERENNIAL ALLERGY
     Dosage: 10 MG, QD, PRN
     Route: 065
     Dates: start: 201303
  10. DULOXETINE. [Concomitant]
     Active Substance: DULOXETINE
     Indication: DEPRESSION
     Dosage: 60 MG, BID
     Route: 065
     Dates: start: 201203
  11. SILDENAFIL. [Concomitant]
     Active Substance: SILDENAFIL
     Indication: ERECTILE DYSFUNCTION
     Dosage: 100 MG, PRN
     Route: 065
     Dates: start: 201601
  12. MULTIVITAMINES WITH IRON           /02170101/ [Concomitant]
     Indication: SUPPLEMENTATION THERAPY
     Dosage: UNK, QD
     Route: 065
     Dates: start: 201303
  13. ACETAMINOPHEN. [Concomitant]
     Active Substance: ACETAMINOPHEN
     Indication: PAIN
     Dosage: 650 MG, EVERY 6 HOURS PRN
     Route: 048
     Dates: start: 201902
  14. ASPIRIN 81 [Concomitant]
     Active Substance: ASPIRIN
     Indication: PROPHYLAXIS
     Dosage: 81 MG, QD
     Route: 065
     Dates: start: 202005
  15. METHOTREXATE. [Concomitant]
     Active Substance: METHOTREXATE
     Indication: RHEUMATOID ARTHRITIS
     Dosage: 25 MG, WEEKLY
     Route: 058
     Dates: start: 202005
  16. AZELASTINE. [Concomitant]
     Active Substance: AZELASTINE HYDROCHLORIDE
     Indication: PERENNIAL ALLERGY
     Dosage: 1 SPRAY EACH NOSTRIL, BID
     Route: 065
     Dates: start: 201905
  17. EPIPEN [Concomitant]
     Active Substance: EPINEPHRINE
     Indication: ANAPHYLACTIC REACTION
     Dosage: PRN
     Route: 065
     Dates: start: 201702
  18. MUPIROCIN. [Suspect]
     Active Substance: MUPIROCIN
     Dosage: 1 APPLICATION, EVERY 1 TO 2 DAYS
     Route: 061
     Dates: start: 202102
  19. FOLIC ACID. [Concomitant]
     Active Substance: FOLIC ACID
     Indication: SUPPLEMENTATION THERAPY
     Dosage: 3 MG, QD
     Route: 065
     Dates: start: 202012
  20. MELATONIN [Concomitant]
     Active Substance: MELATONIN
     Indication: INSOMNIA
     Dosage: 3 MG, QD
     Route: 065
  21. LYSINE [Concomitant]
     Active Substance: LYSINE
     Indication: ROUTINE HEALTH MAINTENANCE
     Dosage: 500 MG, QD
     Route: 065
     Dates: start: 201303
  22. TRIAMCINOLONE ACETONIDE. [Suspect]
     Active Substance: TRIAMCINOLONE ACETONIDE
     Dosage: 1 APPLICATION, EVERY 1 TO 2 DAYS
     Route: 061
     Dates: start: 202102
  23. MUPIROCIN. [Suspect]
     Active Substance: MUPIROCIN
     Indication: SKIN ULCER
     Dosage: 1 APPLICATION, QD
     Route: 061
     Dates: start: 202011, end: 202101
  24. NAPROXEN. [Concomitant]
     Active Substance: NAPROXEN
     Indication: ARTHRALGIA
     Dosage: 500 MG, BID
     Route: 065
     Dates: start: 202012
  25. TRUVADA [Concomitant]
     Active Substance: EMTRICITABINE\TENOFOVIR DISOPROXIL FUMARATE
     Indication: PROPHYLAXIS AGAINST HIV INFECTION
     Dosage: 200?300 MG, QD
     Route: 065
     Dates: start: 202012
  26. TRAZODONE [Concomitant]
     Active Substance: TRAZODONE HYDROCHLORIDE
     Indication: INSOMNIA
     Dosage: 150 MG, EVERY NIGHT
     Route: 065
     Dates: start: 202012
  27. DOCUSATE SODIUM. [Concomitant]
     Active Substance: DOCUSATE SODIUM
     Indication: FAECES HARD
     Dosage: 100 MG, TID
     Route: 065
     Dates: start: 202005
  28. CYCLOSPORINE. [Concomitant]
     Active Substance: CYCLOSPORINE
     Indication: DRY EYE
     Dosage: 1 DROP BOTH EYES, BID
     Route: 065
     Dates: start: 201912
  29. IPRATROPIUM [Concomitant]
     Active Substance: IPRATROPIUM
     Indication: PERENNIAL ALLERGY
     Dosage: 2 SPRAYS EACH NOSTRIL, TID, PRN
     Route: 065
     Dates: start: 201405
  30. ZINC 220 [Concomitant]
     Indication: ROUTINE HEALTH MAINTENANCE
     Dosage: 50 MG, QD
     Route: 065
     Dates: start: 201303
  31. ENALAPRIL [Concomitant]
     Active Substance: ENALAPRIL
     Indication: HYPERTENSION
     Dosage: UNK
     Route: 065
     Dates: start: 202008
  32. CLOTRIMAZOLE AND BETAMETHASONE [Concomitant]
     Active Substance: BETAMETHASONE\CLOTRIMAZOLE
     Indication: ONYCHOMYCOSIS
     Dosage: UNKNOWN, BID  PRN
     Route: 065
     Dates: start: 202002
  33. DICLOFENAC SODIUM. [Concomitant]
     Active Substance: DICLOFENAC SODIUM
     Indication: ARTHRALGIA
     Dosage: UNKNOWN, QID
     Route: 065
     Dates: start: 201910
  34. METHYLPHENIDATE HYDROCHLORIDE. [Concomitant]
     Active Substance: METHYLPHENIDATE HYDROCHLORIDE
     Indication: NARCOLEPSY
     Dosage: 10 MG BID AND 5 MG 1 TO 2 TIMES DAILY PRN
     Route: 065
     Dates: start: 201412
  35. TRIAMCINOLONE ACETONIDE. [Suspect]
     Active Substance: TRIAMCINOLONE ACETONIDE
     Indication: SKIN ULCER
     Dosage: 1 APPLICATION, QD
     Route: 061
     Dates: start: 202011, end: 202101
  36. CLOTRIMAZOLE AND BETAMETHASONE [Concomitant]
     Active Substance: BETAMETHASONE\CLOTRIMAZOLE
     Indication: ECZEMA

REACTIONS (3)
  - Incorrect product administration duration [Not Recovered/Not Resolved]
  - Drug screen positive [Recovered/Resolved]
  - Off label use [Not Recovered/Not Resolved]

NARRATIVE: CASE EVENT DATE: 202011
